FAERS Safety Report 4290301-2 (Version None)
Quarter: 2004Q1

REPORT INFORMATION
  Report Type: 
  Country: None (occurrence: None)
  Receive Date: 20040209
  Receipt Date: 20040127
  Transmission Date: 20041129
  Serious: Yes (Disabling)
  Sender: FDA-Public Use
  Company Number: HQWYE389827AUG03

PATIENT
  Age: 43 Year
  Sex: Male
  Weight: 102.15 kg

DRUGS (8)
  1. EFFEXOR XR [Suspect]
     Indication: MAJOR DEPRESSION
     Dosage: ^VARIED FROM 150 MG A DAY UP TO 300 MG A DAY^, ORAL
     Route: 048
     Dates: start: 19980829, end: 20030601
  2. EFFEXOR XR [Suspect]
     Indication: PANIC DISORDER
     Dosage: ^VARIED FROM 150 MG A DAY UP TO 300 MG A DAY^, ORAL
     Route: 048
     Dates: start: 19980829, end: 20030601
  3. VASOTEC [Concomitant]
  4. ZOCOR [Concomitant]
  5. ULTRAM [Concomitant]
  6. ALCOHOL (ETHANOL) [Concomitant]
  7. MARIJUANA (CANNABIS) [Concomitant]
  8. ATIVAN [Concomitant]

REACTIONS (34)
  - AGITATION [None]
  - ANGER [None]
  - ANHEDONIA [None]
  - ANXIETY [None]
  - APATHY [None]
  - BLOOD CHOLESTEROL INCREASED [None]
  - BLOOD TRIGLYCERIDES INCREASED [None]
  - DECREASED INTEREST [None]
  - DEPRESSION [None]
  - DIARRHOEA [None]
  - DISTURBANCE IN ATTENTION [None]
  - DIZZINESS [None]
  - DRUG DEPENDENCE [None]
  - DRUG WITHDRAWAL SYNDROME [None]
  - DYSPNOEA [None]
  - FATIGUE [None]
  - FEELING ABNORMAL [None]
  - HEADACHE [None]
  - HEART RATE INCREASED [None]
  - HEPATOCELLULAR DAMAGE [None]
  - HYPERHIDROSIS [None]
  - INSOMNIA [None]
  - IRRITABILITY [None]
  - LETHARGY [None]
  - LOSS OF CONSCIOUSNESS [None]
  - MEMORY IMPAIRMENT [None]
  - NERVOUSNESS [None]
  - NIGHT SWEATS [None]
  - PANIC DISORDER [None]
  - PARAESTHESIA [None]
  - SEXUAL DYSFUNCTION [None]
  - SUICIDAL IDEATION [None]
  - TREMOR [None]
  - WEIGHT INCREASED [None]
